FAERS Safety Report 19593032 (Version 1)
Quarter: 2021Q3

REPORT INFORMATION
  Report Type: Spontaneous
  Country: US (occurrence: US)
  Receive Date: 20210721
  Receipt Date: 20210721
  Transmission Date: 20211014
  Serious: No
  Sender: FDA-Public Use
  Company Number: None

PATIENT

DRUGS (2)
  1. NITROFURANTOIN. [Suspect]
     Active Substance: NITROFURANTOIN
  2. AMPICILLIN [Suspect]
     Active Substance: AMPICILLIN

REACTIONS (3)
  - Product label issue [None]
  - Drug monitoring procedure incorrectly performed [None]
  - Product packaging confusion [None]
